FAERS Safety Report 6845839-8 (Version None)
Quarter: 2010Q3

REPORT INFORMATION
  Report Type: 
  Country: None (occurrence: None)
  Receive Date: 20100715
  Receipt Date: 20071004
  Transmission Date: 20110219
  Serious: No
  Sender: FDA-Public Use
  Company Number: US-PFIZER INC-2007071959

PATIENT
  Sex: Female
  Weight: 61.4 kg

DRUGS (9)
  1. CHANTIX [Suspect]
     Indication: SMOKING CESSATION THERAPY
     Dates: start: 20070701
  2. VYTORIN [Concomitant]
  3. CYMBALTA [Concomitant]
  4. VASOTEC [Concomitant]
  5. LORTAB [Concomitant]
  6. TRAZODONE HYDROCHLORIDE [Concomitant]
  7. NEURONTIN [Concomitant]
  8. RELAFEN [Concomitant]
  9. XANAX [Concomitant]

REACTIONS (1)
  - BLOOD POTASSIUM INCREASED [None]
